FAERS Safety Report 4795706-9 (Version None)
Quarter: 2005Q4

REPORT INFORMATION
  Report Type: 
  Country: None (occurrence: None)
  Receive Date: 20051006
  Receipt Date: 20051006
  Transmission Date: 20060501
  Serious: Yes (Life-Threatening)
  Sender: FDA-Public Use
  Company Number: None

PATIENT
  Age: 63 Year
  Sex: Female
  Weight: 84.8 kg

DRUGS (9)
  1. OXALIPLATIN SANOFI AVENTIS [Suspect]
     Indication: COLON CANCER METASTATIC
     Dosage: 85 MG/M2- 160 MG- Q 2 WEEKS LONTOPHORE   5 CYCLES
     Dates: start: 20050310, end: 20050505
  2. BEVACIZUMAB [Concomitant]
  3. FLUOROURACIL [Concomitant]
  4. LEUCOVORIN [Concomitant]
  5. .. [Concomitant]
  6. DIPHENHYDRAMINE HCL [Concomitant]
  7. HYDROCORTISONE [Concomitant]
  8. ALBUTEROL [Concomitant]
  9. EPINEPHRINE [Concomitant]

REACTIONS (1)
  - DRUG HYPERSENSITIVITY [None]
